FAERS Safety Report 9166040 (Version 4)
Quarter: 2013Q3

REPORT INFORMATION
  Report Type: Report from Study
  Country: JP (occurrence: JP)
  Receive Date: 20130315
  Receipt Date: 20130829
  Transmission Date: 20140515
  Serious: Yes (Other)
  Sender: FDA-Public Use
  Company Number: JP-JNJFOC-20130306524

PATIENT
  Age: 73 Year
  Sex: Male
  Weight: 50 kg

DRUGS (12)
  1. SIMPONI [Suspect]
     Indication: RHEUMATOID ARTHRITIS
     Route: 058
     Dates: start: 20120728
  2. SIMPONI [Suspect]
     Indication: RHEUMATOID ARTHRITIS
     Route: 058
     Dates: start: 20120825
  3. RHEUMATREX [Suspect]
     Indication: RHEUMATOID ARTHRITIS
     Route: 048
     Dates: start: 20100806, end: 20120526
  4. RHEUMATREX [Suspect]
     Indication: RHEUMATOID ARTHRITIS
     Route: 048
     Dates: start: 20120825
  5. RHEUMATREX [Suspect]
     Indication: RHEUMATOID ARTHRITIS
     Route: 048
     Dates: start: 20120602, end: 20120818
  6. CELECOX [Concomitant]
     Indication: RHEUMATOID ARTHRITIS
     Route: 048
  7. FOLIAMIN [Concomitant]
     Indication: PROPHYLAXIS
  8. NESINA [Concomitant]
     Indication: DIABETES MELLITUS
     Route: 048
  9. CALONAL [Concomitant]
     Indication: RHEUMATOID ARTHRITIS
     Dates: start: 20111210, end: 20120929
  10. MAGMITT [Concomitant]
     Indication: CONSTIPATION
     Route: 048
  11. OVULANZE [Concomitant]
     Indication: PROPHYLAXIS
     Route: 048
  12. KALIMATE [Concomitant]
     Indication: CONSTIPATION
     Route: 048

REACTIONS (3)
  - Renal impairment [Not Recovered/Not Resolved]
  - Platelet count decreased [Not Recovered/Not Resolved]
  - White blood cell count decreased [Recovered/Resolved]
